FAERS Safety Report 9229558 (Version 2)
Quarter: 2013Q3

REPORT INFORMATION
  Report Type: Spontaneous
  Country: US (occurrence: US)
  Receive Date: 20130414
  Receipt Date: 20130802
  Transmission Date: 20140515
  Serious: Yes (Hospitalization)
  Sender: FDA-Public Use
  Company Number: US-SANOFI-AVENTIS-2013SA037237

PATIENT
  Age: 59 Year
  Sex: Female

DRUGS (15)
  1. LANTUS [Suspect]
     Indication: TYPE 2 DIABETES MELLITUS
     Dosage: 100 IU/UNITS
  2. SAXAGLIPTIN HYDROCHLORIDE [Concomitant]
     Indication: TYPE 2 DIABETES MELLITUS
     Route: 065
     Dates: start: 20110129
  3. NOVOLINE R [Concomitant]
     Indication: TYPE 2 DIABETES MELLITUS
     Dosage: 100 IU/UNITS
     Route: 065
  4. ASPIRIN [Concomitant]
     Dosage: }100 MG
     Dates: start: 20110124
  5. ASPIRIN [Concomitant]
     Dosage: }100 MG
     Dates: start: 20110812
  6. ASPIRIN [Concomitant]
     Dosage: }100 MG
     Dates: start: 20111020
  7. ASPIRIN [Concomitant]
     Dosage: }100 MG
     Dates: start: 20120127
  8. ASPIRIN [Concomitant]
     Dosage: }100 MG
     Dates: start: 20120418
  9. ASPIRIN [Concomitant]
     Dosage: ={100 MG
     Dates: start: 20130117
  10. TRIMETAZIDINE [Concomitant]
     Dates: start: 20110124
  11. RANOLAZINE [Concomitant]
     Dates: start: 20110124
  12. IVABRADINE HYDROCHLORIDE [Concomitant]
     Dates: start: 20110124
  13. ANTI ANGINAL [Concomitant]
     Dates: start: 20110124
  14. EZETIMIBE [Concomitant]
  15. PLAVIX [Concomitant]
     Route: 065

REACTIONS (2)
  - Diabetic ketoacidosis [Recovered/Resolved]
  - Dysfunctional uterine bleeding [Unknown]
